FAERS Safety Report 16749517 (Version 1)
Quarter: 2019Q3

REPORT INFORMATION
  Report Type: Spontaneous
  Country: IE (occurrence: IE)
  Receive Date: 20190828
  Receipt Date: 20190828
  Transmission Date: 20191005
  Serious: Yes (Life-Threatening, Hospitalization, Other)
  Sender: FDA-Public Use
  Company Number: IE-MICRO LABS LIMITED-ML2019-02061

PATIENT
  Age: 56 Year
  Sex: Female

DRUGS (11)
  1. CLOZAPINE. [Suspect]
     Active Substance: CLOZAPINE
     Dates: start: 201511, end: 2015
  2. CLOZAPINE. [Suspect]
     Active Substance: CLOZAPINE
     Dosage: 125 MG NOCTE
     Dates: start: 2015
  3. SODIUM VALPROATE [Concomitant]
     Active Substance: VALPROATE SODIUM
     Indication: SCHIZOAFFECTIVE DISORDER
     Dosage: CHRONO 1200 MG NOCTE
     Dates: end: 2015
  4. CLOZAPINE. [Suspect]
     Active Substance: CLOZAPINE
     Dates: start: 201510
  5. LEVOTHYROXINE. [Concomitant]
     Active Substance: LEVOTHYROXINE
     Indication: HYPOTHYROIDISM
  6. FLUPHENAZINE [Concomitant]
     Active Substance: FLUPHENAZINE
  7. AMOXICILLIN/CLAVULANIC ACID [Suspect]
     Active Substance: AMOXICILLIN\CLAVULANIC ACID
     Indication: RESPIRATORY TRACT INFECTION
     Dates: start: 201511, end: 2015
  8. LANSOPRAZOLE. [Concomitant]
     Active Substance: LANSOPRAZOLE
     Dates: end: 2015
  9. CLOZAPINE. [Suspect]
     Active Substance: CLOZAPINE
     Indication: SCHIZOAFFECTIVE DISORDER
     Dosage: 50 MG MANE
     Dates: start: 2015
  10. SALMETEROL [Concomitant]
     Active Substance: SALMETEROL
  11. TIOTROPIUM [Concomitant]
     Active Substance: TIOTROPIUM

REACTIONS (7)
  - Renal failure [Recovering/Resolving]
  - Sedation complication [Unknown]
  - Drug level increased [Unknown]
  - Toxicity to various agents [Recovering/Resolving]
  - Tubulointerstitial nephritis [Recovering/Resolving]
  - Tachycardia [Recovering/Resolving]
  - Salivary hypersecretion [Unknown]
